FAERS Safety Report 23520094 (Version 1)
Quarter: 2024Q1

REPORT INFORMATION
  Report Type: Spontaneous
  Country: ES (occurrence: ES)
  Receive Date: 20240214
  Receipt Date: 20240214
  Transmission Date: 20240410
  Serious: Yes (Hospitalization)
  Sender: FDA-Public Use
  Company Number: ES-ROCHE-3499806

PATIENT
  Age: 63 Year
  Sex: Male

DRUGS (18)
  1. DOXORUBICIN [Suspect]
     Active Substance: DOXORUBICIN
     Indication: Diffuse large B-cell lymphoma
     Dosage: UNK
     Route: 065
     Dates: start: 20230502
  2. GEMCITABINE [Suspect]
     Active Substance: GEMCITABINE
     Indication: Diffuse large B-cell lymphoma
     Dosage: UNK
     Route: 065
     Dates: start: 20231221
  3. OXALIPLATIN [Suspect]
     Active Substance: OXALIPLATIN
     Indication: Diffuse large B-cell lymphoma
     Dosage: UNK
     Route: 065
     Dates: start: 20231221
  4. CYTARABINE [Suspect]
     Active Substance: CYTARABINE
     Indication: Diffuse large B-cell lymphoma
     Dosage: UNK (CYCLE 1 )
     Route: 065
  5. CYTARABINE [Suspect]
     Active Substance: CYTARABINE
     Dosage: UNK (CYCLE 2 )
     Route: 065
     Dates: start: 20231101
  6. CYCLOPHOSPHAMIDE [Suspect]
     Active Substance: CYCLOPHOSPHAMIDE
     Indication: Diffuse large B-cell lymphoma
     Dosage: UNK
     Route: 065
     Dates: start: 20230502
  7. CISPLATIN [Suspect]
     Active Substance: CISPLATIN
     Indication: Diffuse large B-cell lymphoma
     Dosage: UNK (CYCLE 1)
     Route: 065
     Dates: start: 20230925
  8. CISPLATIN [Suspect]
     Active Substance: CISPLATIN
     Dosage: UNK (CYCLE 2 )
     Route: 065
     Dates: start: 20231101
  9. ETOPOSIDE [Suspect]
     Active Substance: ETOPOSIDE
     Indication: Diffuse large B-cell lymphoma
     Dosage: UNK (CYCLE 1 )
     Route: 065
     Dates: start: 20230925
  10. ETOPOSIDE [Suspect]
     Active Substance: ETOPOSIDE
     Dosage: UNK (CYCLE 2 )
     Route: 065
     Dates: start: 20231101
  11. PREDNISONE [Suspect]
     Active Substance: PREDNISONE
     Indication: Diffuse large B-cell lymphoma
     Dosage: UNK
     Route: 065
     Dates: start: 20230502
  12. RITUXIMAB [Suspect]
     Active Substance: RITUXIMAB
     Indication: Diffuse large B-cell lymphoma
     Dosage: UNK
     Route: 065
     Dates: start: 20230502, end: 20230828
  13. RITUXIMAB [Suspect]
     Active Substance: RITUXIMAB
     Dosage: UNK (CYCLE 1 )
     Route: 065
     Dates: start: 20230925
  14. RITUXIMAB [Suspect]
     Active Substance: RITUXIMAB
     Dosage: UNK (CYCLE 2 )
     Route: 065
     Dates: start: 20231101
  15. RITUXIMAB [Suspect]
     Active Substance: RITUXIMAB
     Dosage: UNK
     Route: 065
     Dates: start: 20231221
  16. METHYLPREDNISOLONE SODIUM SUCCINATE [Suspect]
     Active Substance: METHYLPREDNISOLONE SODIUM SUCCINATE
     Indication: Diffuse large B-cell lymphoma
     Dosage: UNK (CYCLE 1 )
     Route: 065
     Dates: start: 20230925
  17. METHYLPREDNISOLONE SODIUM SUCCINATE [Suspect]
     Active Substance: METHYLPREDNISOLONE SODIUM SUCCINATE
     Dosage: UNK (CYCLE 2)
     Route: 065
     Dates: start: 20231101
  18. VINCRISTINE [Suspect]
     Active Substance: VINCRISTINE
     Indication: Diffuse large B-cell lymphoma
     Dosage: UNK
     Route: 065
     Dates: start: 20230502

REACTIONS (1)
  - Disease progression [Unknown]
